FAERS Safety Report 19135009 (Version 1)
Quarter: 2021Q2

REPORT INFORMATION
  Report Type: Spontaneous
  Country: US (occurrence: US)
  Receive Date: 20210414
  Receipt Date: 20210414
  Transmission Date: 20210717
  Serious: Yes (Hospitalization, Other)
  Sender: FDA-Public Use
  Company Number: US-PFIZER INC-2021366697

PATIENT
  Age: 72 Year
  Sex: Male
  Weight: 82 kg

DRUGS (1)
  1. VERAPAMIL HCL [Suspect]
     Active Substance: VERAPAMIL HYDROCHLORIDE
     Dosage: 240 MG, DAILY
     Route: 048

REACTIONS (1)
  - Bradycardia [Unknown]
